FAERS Safety Report 5317511-7 (Version None)
Quarter: 2007Q2

REPORT INFORMATION
  Report Type: 
  Country: None (occurrence: None)
  Receive Date: 20070507
  Receipt Date: 20070426
  Transmission Date: 20071010
  Serious: Yes (Hospitalization)
  Sender: FDA-Public Use
  Company Number: PHEH2007US04708

PATIENT
  Age: 54 Year
  Sex: Female

DRUGS (7)
  1. ZELNORM [Suspect]
     Indication: DIVERTICULITIS
     Dosage: UNK, BID
     Dates: start: 20050101, end: 20070402
  2. ALBUTEROL [Concomitant]
  3. LESCOL [Concomitant]
     Indication: HYPERCHOLESTEROLAEMIA
  4. NITRONG - SLOW RELEASE [Concomitant]
     Dosage: 4MG, UNK
  5. LASIX [Concomitant]
     Dosage: 40 MG, QD
  6. ZANTAC [Concomitant]
     Indication: GASTROINTESTINAL DISORDER
     Dosage: 150 MG, UNK
  7. FLONASE [Concomitant]
     Dosage: 2 SPRAYS, UNK
     Route: 045

REACTIONS (2)
  - CHEST PAIN [None]
  - TACHYCARDIA [None]
